FAERS Safety Report 22624531 (Version 1)
Quarter: 2023Q2

REPORT INFORMATION
  Report Type: Spontaneous
  Country: MY (occurrence: MY)
  Receive Date: 20230621
  Receipt Date: 20230621
  Transmission Date: 20230722
  Serious: Yes (Other)
  Sender: FDA-Public Use
  Company Number: MY-MYLANLABS-2023M1063806

PATIENT
  Age: 21 Year
  Sex: Female

DRUGS (1)
  1. VANCOMYCIN [Suspect]
     Active Substance: VANCOMYCIN
     Indication: Neutropenic sepsis
     Dosage: 750 MILLIGRAM, QD
     Route: 042

REACTIONS (2)
  - Angioedema [Recovering/Resolving]
  - Periorbital oedema [Recovering/Resolving]
